FAERS Safety Report 21471511 (Version 1)
Quarter: 2022Q4

REPORT INFORMATION
  Report Type: Spontaneous
  Country: GB (occurrence: GB)
  Receive Date: 20221018
  Receipt Date: 20221018
  Transmission Date: 20230113
  Serious: Yes (Other)
  Sender: FDA-Public Use
  Company Number: None

PATIENT
  Age: 72 Year
  Sex: Female

DRUGS (5)
  1. DOXYCYCLINE [Suspect]
     Active Substance: DOXYCYCLINE
     Indication: Product used for unknown indication
     Dosage: 100 MILLIGRAM (2 TODAY, THEN ONE DAILY)
     Route: 065
     Dates: start: 20220930
  2. ESTRADERM [Concomitant]
     Active Substance: ESTRADIOL
     Dosage: 1 DOSAGE FORM, BIWEEKLY
     Route: 065
     Dates: start: 20220725
  3. POTASSIUM BICARBONATE\SODIUM ALGINATE [Concomitant]
     Active Substance: POTASSIUM BICARBONATE\SODIUM ALGINATE
     Dosage: UNK UNK, TID (5-10 ML)
     Route: 048
     Dates: start: 20220725
  4. METRONIDAZOLE [Concomitant]
     Active Substance: METRONIDAZOLE
     Dosage: 400 MILLIGRAM, TID
     Route: 065
     Dates: start: 20220923
  5. OXYBUTYNIN [Concomitant]
     Active Substance: OXYBUTYNIN
     Dosage: 5 MILLIGRAM, QD
     Route: 065
     Dates: start: 20220712

REACTIONS (4)
  - Drug hypersensitivity [Recovered/Resolved]
  - Mouth swelling [Unknown]
  - Swollen tongue [Unknown]
  - Vomiting [Unknown]

NARRATIVE: CASE EVENT DATE: 20220930
